FAERS Safety Report 7913451-5 (Version None)
Quarter: 2011Q4

REPORT INFORMATION
  Report Type: 
  Country: None (occurrence: None)
  Receive Date: 20111115
  Receipt Date: 20111104
  Transmission Date: 20120403
  Serious: No
  Sender: FDA-Public Use
  Company Number: US-BIOGENIDEC-2011BI042707

PATIENT
  Age: 41 Year
  Sex: Female

DRUGS (2)
  1. NUVIGIL [Concomitant]
     Indication: AMNESIA
  2. AVONEX [Suspect]
     Indication: MULTIPLE SCLEROSIS
     Route: 030
     Dates: start: 20110813

REACTIONS (8)
  - PYREXIA [None]
  - VISUAL IMPAIRMENT [None]
  - PNEUMONIA [None]
  - PAIN [None]
  - MULTIPLE SCLEROSIS RELAPSE [None]
  - DYSGEUSIA [None]
  - DEPRESSED MOOD [None]
  - IMPATIENCE [None]
